FAERS Safety Report 19816161 (Version 2)
Quarter: 2021Q3

REPORT INFORMATION
  Report Type: Spontaneous
  Country: JP (occurrence: JP)
  Receive Date: 20210909
  Receipt Date: 20210914
  Transmission Date: 20211014
  Serious: Yes (Other)
  Sender: FDA-Public Use
  Company Number: NVSC2021JP202132

PATIENT
  Age: 58 Year
  Sex: Male

DRUGS (10)
  1. MELPHALAN. [Suspect]
     Active Substance: MELPHALAN
     Indication: LYMPHOMA
     Dosage: UNK UNK, UNKNOWN
     Route: 065
  2. BLEOMYCIN HYDROCHLORIDE [Suspect]
     Active Substance: BLEOMYCIN HYDROCHLORIDE
     Indication: LYMPHOMA
     Dosage: UNK UNK, UNKNOWN
     Route: 065
  3. IFOSFAMIDE. [Suspect]
     Active Substance: IFOSFAMIDE
     Indication: LYMPHOMA
     Dosage: UNK UNK, UNKNOWN
     Route: 065
  4. VINBLASTIN [Suspect]
     Active Substance: VINBLASTINE
     Indication: LYMPHOMA
     Dosage: UNK UNK, UNKNOWN
     Route: 065
  5. CYCLOPHOSPHAMIDE. [Suspect]
     Active Substance: CYCLOPHOSPHAMIDE
     Indication: LYMPHOMA
     Dosage: UNK UNK, UNKNOWN
     Route: 065
  6. RITUXIMAB. [Suspect]
     Active Substance: RITUXIMAB
     Indication: LYMPHOMA
     Dosage: UNK
     Route: 065
  7. DOXORUBICIN HYDROCHLORIDE. [Suspect]
     Active Substance: DOXORUBICIN HYDROCHLORIDE
     Indication: LYMPHOMA
     Dosage: UNK
     Route: 065
  8. CARBOPLATIN. [Suspect]
     Active Substance: CARBOPLATIN
     Indication: LYMPHOMA
     Dosage: UNK
     Route: 065
  9. DACARBAZINE. [Suspect]
     Active Substance: DACARBAZINE
     Indication: LYMPHOMA
     Dosage: UNK UNK, UNKNOWN
     Route: 065
  10. ETOPOSIDE. [Suspect]
     Active Substance: ETOPOSIDE
     Indication: LYMPHOMA
     Dosage: UNK UNK, UNKNOWN
     Route: 065

REACTIONS (1)
  - Aplastic anaemia [Unknown]
